FAERS Safety Report 4937434-2 (Version None)
Quarter: 2006Q1

REPORT INFORMATION
  Report Type: 
  Country: None (occurrence: None)
  Receive Date: 20060302
  Receipt Date: 20060213
  Transmission Date: 20060701
  Serious: No
  Sender: FDA-Public Use
  Company Number: AU200602003894

PATIENT
  Age: 19 Year
  Sex: Female

DRUGS (2)
  1. OLANZAPINE [Suspect]
  2. EFFEXOR [Concomitant]

REACTIONS (4)
  - ANAL HAEMORRHAGE [None]
  - CONTUSION [None]
  - EPISTAXIS [None]
  - SKIN HAEMORRHAGE [None]
